FAERS Safety Report 9520307 (Version 1)
Quarter: 2013Q3

REPORT INFORMATION
  Report Type: Report from Study
  Country: DE (occurrence: DE)
  Receive Date: 20130912
  Receipt Date: 20130912
  Transmission Date: 20140515
  Serious: Yes (Hospitalization)
  Sender: FDA-Public Use
  Company Number: DE-ABBOTT-13P-062-1143559-00

PATIENT
  Age: 25 Year
  Sex: Male
  Weight: 65.1 kg

DRUGS (1)
  1. HUMIRA [Suspect]
     Indication: CROHN^S DISEASE
     Dates: start: 200705

REACTIONS (2)
  - Alcohol withdrawal syndrome [Recovered/Resolved]
  - Detoxification [Recovered/Resolved]
